FAERS Safety Report 8353011-8 (Version None)
Quarter: 2012Q2

REPORT INFORMATION
  Report Type: 
  Country: None (occurrence: None)
  Receive Date: 20120511
  Receipt Date: 20120503
  Transmission Date: 20120825
  Serious: Yes (Hospitalization, Other)
  Sender: FDA-Public Use
  Company Number: US-BAYER-2012-021859

PATIENT
  Age: 45 Year
  Sex: Female
  Weight: 94.785 kg

DRUGS (22)
  1. NSAID'S [Concomitant]
     Indication: PAIN
     Dosage: UNK UNK, PRN
     Route: 048
  2. MULTI-VITAMIN [Concomitant]
     Route: 048
  3. ZITHROMAX [Concomitant]
     Indication: ACUTE SINUSITIS
     Dosage: UNK
     Route: 048
     Dates: start: 20100412
  4. ZITHROMAX [Concomitant]
     Indication: PHARYNGITIS
  5. METFORMIN HCL [Concomitant]
  6. YAZ [Suspect]
     Indication: DYSMENORRHOEA
  7. YASMIN [Suspect]
     Indication: PELVIC PAIN
  8. FLAXSEED OIL [Concomitant]
     Indication: BLOOD CHOLESTEROL INCREASED
     Dosage: 1 PILL, QD
     Route: 048
  9. ALDOMET [Concomitant]
     Dosage: 250 MG, BID
     Route: 048
  10. PROTONIX [Concomitant]
     Dosage: 40 MG, HS
     Route: 048
  11. ASPIRIN [Concomitant]
     Dosage: 81 MG, QD
     Route: 048
  12. PRILOSEC [Concomitant]
     Dosage: 40 MG, HS
     Route: 048
  13. ZYRTEC [Concomitant]
     Indication: PHARYNGITIS
  14. CALCIUM [Concomitant]
     Dosage: 600 MG, QD
     Route: 048
  15. PROTON PUMP INIBITORS [Concomitant]
     Dosage: UNK
     Dates: start: 20020101
  16. YASMIN [Suspect]
     Indication: PREMENSTRUAL SYNDROME
     Dosage: UNK
     Dates: start: 20080417, end: 20090214
  17. NEXIUM [Concomitant]
     Indication: GASTROOESOPHAGEAL REFLUX DISEASE
     Dosage: UNK UNK, QD
     Route: 048
  18. ZYRTEC [Concomitant]
     Indication: ACUTE SINUSITIS
     Dosage: 10 MG, QD
     Route: 048
     Dates: start: 20100412
  19. YAZ [Suspect]
     Indication: PELVIC PAIN
     Dosage: UNK
     Dates: end: 20080417
  20. YAZ [Suspect]
     Indication: PREMENSTRUAL SYNDROME
  21. YASMIN [Suspect]
     Indication: DYSMENORRHOEA
     Dosage: UNK
     Dates: start: 20100225, end: 20100427
  22. GLUCOPHAGE [Concomitant]
     Indication: INSULIN RESISTANCE
     Dosage: 500 MG, BID
     Route: 048

REACTIONS (6)
  - PALPITATIONS [None]
  - DYSPNOEA [None]
  - PULMONARY EMBOLISM [None]
  - CHEST DISCOMFORT [None]
  - DEEP VEIN THROMBOSIS [None]
  - PAIN [None]
